FAERS Safety Report 6518273-8 (Version None)
Quarter: 2009Q4

REPORT INFORMATION
  Report Type: 
  Country: None (occurrence: None)
  Receive Date: 20091223
  Receipt Date: 20091223
  Transmission Date: 20100525
  Serious: No
  Sender: FDA-Public Use
  Company Number: None

PATIENT

DRUGS (2)
  1. GANCICLOVIR [Suspect]
  2. ACYCLOVIR [Suspect]

REACTIONS (2)
  - DRUG NAME CONFUSION [None]
  - MEDICATION ERROR [None]
